FAERS Safety Report 16825553 (Version 4)
Quarter: 2020Q4

REPORT INFORMATION
  Report Type: Spontaneous
  Country: US (occurrence: US)
  Receive Date: 20190919
  Receipt Date: 20201124
  Transmission Date: 20210113
  Serious: Yes (Death, Hospitalization, Other)
  Sender: FDA-Public Use
  Company Number: US-VIFOR (INTERNATIONAL) INC.-VIT-2019-08331

PATIENT
  Age: 81 Year
  Sex: Female

DRUGS (2)
  1. VELTASSA [Suspect]
     Active Substance: PATIROMER
     Indication: HYPERKALAEMIA
     Route: 048
     Dates: start: 20181228
  2. VELTASSA [Suspect]
     Active Substance: PATIROMER
     Route: 048
     Dates: start: 20181229, end: 2020

REACTIONS (10)
  - Pain in extremity [Unknown]
  - Pulmonary embolism [Unknown]
  - Body temperature increased [Unknown]
  - Arthralgia [Unknown]
  - Fall [Unknown]
  - Nausea [Unknown]
  - Blood potassium increased [Not Recovered/Not Resolved]
  - Death [Fatal]
  - Tremor [Unknown]
  - Product dose omission issue [Not Recovered/Not Resolved]

NARRATIVE: CASE EVENT DATE: 2020
